FAERS Safety Report 15084577 (Version 1)
Quarter: 2018Q2

REPORT INFORMATION
  Report Type: Spontaneous
  Country: IN (occurrence: IN)
  Receive Date: 20180628
  Receipt Date: 20180628
  Transmission Date: 20180711
  Serious: Yes (Other)
  Sender: FDA-Public Use
  Company Number: IN-PFIZER INC-2018259008

PATIENT
  Age: 64 Year
  Sex: Female

DRUGS (4)
  1. FEMARA [Concomitant]
     Active Substance: LETROZOLE
     Dosage: 2.5 MG, 1X/DAY
     Dates: start: 20170914
  2. PALBACE [Suspect]
     Active Substance: PALBOCICLIB
     Indication: BREAST CANCER METASTATIC
     Dosage: 125 MG, 1X/DAY
     Route: 048
  3. LETROZOLE. [Concomitant]
     Active Substance: LETROZOLE
     Dosage: 2.5 MG, UNK
  4. CALCIMAX /00944201/ [Concomitant]
     Dosage: 1 G, DAILY

REACTIONS (5)
  - Gait inability [Unknown]
  - Adenocarcinoma [Unknown]
  - Second primary malignancy [Unknown]
  - Retracted nipple [Unknown]
  - Skin ulcer [Unknown]
